FAERS Safety Report 17601678 (Version 1)
Quarter: 2020Q1

REPORT INFORMATION
  Report Type: Spontaneous
  Country: DE (occurrence: JP)
  Receive Date: 20200330
  Receipt Date: 20200330
  Transmission Date: 20200409
  Serious: Yes (Other)
  Sender: FDA-Public Use
  Company Number: JP-ELI_LILLY_AND_COMPANY-JP201712010581

PATIENT
  Age: 52 Year
  Sex: Male

DRUGS (3)
  1. ERBITUX [Suspect]
     Active Substance: CETUXIMAB
     Indication: TONGUE CANCER RECURRENT
     Dosage: UNK UNK, UNKNOWN
     Route: 065
  2. 5-FU [FLUOROURACIL] [Concomitant]
     Active Substance: FLUOROURACIL
     Indication: TONGUE CANCER RECURRENT
     Dosage: UNK, UNKNOWN
     Route: 065
  3. CISPLATIN. [Concomitant]
     Active Substance: CISPLATIN
     Indication: TONGUE CANCER RECURRENT
     Dosage: UNK, UNKNOWN
     Route: 065

REACTIONS (2)
  - Fistula [Unknown]
  - Dysphagia [Unknown]
